FAERS Safety Report 5893575-7 (Version None)
Quarter: 2008Q3

REPORT INFORMATION
  Report Type: 
  Country: None (occurrence: None)
  Receive Date: 20080923
  Receipt Date: 20080922
  Transmission Date: 20090109
  Serious: Yes (Death, Hospitalization)
  Sender: FDA-Public Use
  Company Number: MX-BRISTOL-MYERS SQUIBB COMPANY-13687108

PATIENT
  Age: 76 Year
  Sex: Male
  Weight: 39 kg

DRUGS (9)
  1. PACLITAXEL [Suspect]
     Indication: NON-SMALL CELL LUNG CANCER
     Dosage: 1ST CYC 22-DEC-2006, 2ND CYC 11-JAN-2007,
     Route: 042
     Dates: start: 20070202, end: 20070202
  2. CARBOPLATIN [Suspect]
     Indication: NON-SMALL CELL LUNG CANCER
     Dosage: 1ST CYC 22-DEC-2006, 2ND CYC 11-JAN-2007, 510 MG ON DAY 10F 21-DAY CYCLE IV
     Route: 042
     Dates: start: 20070202, end: 20070202
  3. ACETAMINOPHEN [Concomitant]
     Route: 048
     Dates: start: 20070122, end: 20070208
  4. ASPIRIN [Concomitant]
     Route: 048
     Dates: start: 20070126, end: 20070208
  5. CELECOXIB [Concomitant]
     Route: 048
     Dates: start: 20061229, end: 20070208
  6. DEXTROMETHORPHAN HYDROBROMIDE [Concomitant]
     Route: 048
     Dates: start: 20070111, end: 20070208
  7. HALOPERIDOL [Concomitant]
     Route: 048
     Dates: start: 20070126, end: 20070208
  8. OMEPRAZOLE [Concomitant]
     Route: 048
     Dates: start: 20070126, end: 20070208
  9. SODIUM PICOSULFATE [Concomitant]
     Route: 048
     Dates: start: 20070111, end: 20070208

REACTIONS (2)
  - CARDIAC ARREST [None]
  - DIARRHOEA [None]
